FAERS Safety Report 14895545 (Version 1)
Quarter: 2018Q2

REPORT INFORMATION
  Report Type: Report from Study
  Country: MX (occurrence: MX)
  Receive Date: 20180515
  Receipt Date: 20180515
  Transmission Date: 20180711
  Serious: Yes (Hospitalization)
  Sender: FDA-Public Use
  Company Number: PHHY2018MX007868

PATIENT
  Age: 55 Year
  Sex: Male

DRUGS (2)
  1. EXFORGE HCT [Suspect]
     Active Substance: AMLODIPINE BESYLATE\HYDROCHLOROTHIAZIDE\VALSARTAN
     Indication: HYPERTENSION
     Dosage: 1 DF, (AMLODIPINE 05 MG, HYDROCHLOROTHIAZIDE 12.5 MG AND VALSARTAN 160 MG), QD
     Route: 048
  2. EXFORGE HCT [Suspect]
     Active Substance: AMLODIPINE BESYLATE\HYDROCHLOROTHIAZIDE\VALSARTAN
     Dosage: 1 DF, (AMLODIPINE 10 MG, HYDROCHLOROTHIAZIDE 25 MG AND VALSARTAN 320 MG), QD
     Route: 048

REACTIONS (4)
  - Wound [Not Recovered/Not Resolved]
  - Cholelithiasis [Unknown]
  - Pancreatitis [Unknown]
  - Cyst [Unknown]

NARRATIVE: CASE EVENT DATE: 201802
